FAERS Safety Report 23875127 (Version 3)
Quarter: 2024Q3

REPORT INFORMATION
  Report Type: Spontaneous
  Country: US (occurrence: US)
  Receive Date: 20240520
  Receipt Date: 20240823
  Transmission Date: 20241016
  Serious: No
  Sender: CALLIDITAS THERAPEUTICS
  Company Number: US-Calliditas-2024CAL00729

PATIENT
  Age: 77 Year
  Sex: Female

DRUGS (1)
  1. TARPEYO [Suspect]
     Active Substance: BUDESONIDE
     Indication: Haematuria
     Route: 048
     Dates: start: 20240224

REACTIONS (4)
  - Anaemia [Not Recovered/Not Resolved]
  - Blood iron decreased [Unknown]
  - Blood pressure increased [Not Recovered/Not Resolved]
  - Hirsutism [Unknown]
